FAERS Safety Report 17944049 (Version 1)
Quarter: 2020Q2

REPORT INFORMATION
  Report Type: Spontaneous
  Country: RO (occurrence: RO)
  Receive Date: 20200625
  Receipt Date: 20200625
  Transmission Date: 20200714
  Serious: Yes (Death)
  Sender: FDA-Public Use
  Company Number: RO-ROCHE-2629338

PATIENT
  Weight: 85 kg

DRUGS (1)
  1. ROACTEMRA [Suspect]
     Active Substance: TOCILIZUMAB
     Indication: COVID-19
     Dosage: TOTAL DOSE: 3200 MG
     Route: 065

REACTIONS (2)
  - Off label use [Unknown]
  - Death [Fatal]
